FAERS Safety Report 14228623 (Version 2)
Quarter: 2017Q4

REPORT INFORMATION
  Report Type: Report from Study
  Country: None (occurrence: IL)
  Receive Date: 20171128
  Receipt Date: 20171201
  Transmission Date: 20180321
  Serious: Yes (Other)
  Sender: FDA-Public Use
  Company Number: IL-ABBVIE-17P-082-1857473-00

PATIENT
  Sex: Male

DRUGS (5)
  1. DUODOPA [Suspect]
     Active Substance: CARBIDOPA\LEVODOPA
     Indication: PARKINSON^S DISEASE
     Dosage: MORNING DOSE 17ML CONTINUOUS DAY RATE 2.5ML/HOUR   (FIXED 2.5 ML/ HOUR)
     Route: 050
     Dates: start: 20161027
  2. LORIVAN [Concomitant]
     Indication: PRODUCT USED FOR UNKNOWN INDICATION
  3. MIRO [Concomitant]
     Indication: PRODUCT USED FOR UNKNOWN INDICATION
  4. ACERIL [Concomitant]
     Indication: PRODUCT USED FOR UNKNOWN INDICATION
  5. DUODOPA [Suspect]
     Active Substance: CARBIDOPA\LEVODOPA
     Dosage: MORNING DOSE:20ML. CURRENT CONTINUES RATE:5 ML/HOUR. ED:4ML (CHANGED TO NIGHT TREATMENT)
     Route: 050

REACTIONS (11)
  - Injury [Unknown]
  - Myalgia [Recovering/Resolving]
  - Somnolence [Unknown]
  - Urinary incontinence [Unknown]
  - Respiratory rate increased [Unknown]
  - Memory impairment [Unknown]
  - Blood glucose increased [Unknown]
  - Dyspnoea [Unknown]
  - Gait inability [Unknown]
  - Parkinson^s disease [Unknown]
  - Middle insomnia [Unknown]
